FAERS Safety Report 7810483-2 (Version None)
Quarter: 2011Q4

REPORT INFORMATION
  Report Type: 
  Country: None (occurrence: None)
  Receive Date: 20111012
  Receipt Date: 20111003
  Transmission Date: 20120403
  Serious: Yes (Hospitalization)
  Sender: FDA-Public Use
  Company Number: US-ASTRAZENECA-2011SE04121

PATIENT
  Age: 43 Year
  Sex: Male
  Weight: 113.4 kg

DRUGS (17)
  1. SEROQUEL [Suspect]
     Dosage: TAKING HALF HIS DOSE
     Route: 048
  2. LISINOPRIL [Concomitant]
  3. CARVEDILOL [Concomitant]
  4. SEROQUEL [Suspect]
     Dosage: TAKING HALF HIS DOSE
     Route: 048
  5. SEROQUEL [Suspect]
     Indication: DEPRESSION
     Route: 048
  6. HYDROCODONE BITARTRATE [Concomitant]
  7. HYDRO OXYZINE PAM [Concomitant]
  8. ESOMEPRAZOLE SODIUM [Concomitant]
  9. MELOXICAM [Concomitant]
  10. SEROQUEL [Suspect]
     Indication: BIPOLAR DISORDER
     Route: 048
  11. SEROQUEL [Suspect]
     Indication: SLEEP DISORDER
     Route: 048
  12. SEROQUEL [Suspect]
     Dosage: TAKING HALF HIS DOSE
     Route: 048
  13. VENLAFAXINE [Concomitant]
  14. SIMVASTATIN [Concomitant]
  15. NABUMETONE [Concomitant]
  16. OXCARBAZEPINE [Concomitant]
  17. METHOCARBEMOL [Concomitant]

REACTIONS (13)
  - CARDIAC DISORDER [None]
  - NAUSEA [None]
  - LIGAMENT SPRAIN [None]
  - ABDOMINAL PAIN UPPER [None]
  - SLUGGISHNESS [None]
  - INSOMNIA [None]
  - INCORRECT DOSE ADMINISTERED [None]
  - CHEST PAIN [None]
  - MALAISE [None]
  - WEIGHT DECREASED [None]
  - MEMORY IMPAIRMENT [None]
  - UPPER RESPIRATORY TRACT INFECTION [None]
  - DRUG DOSE OMISSION [None]
